FAERS Safety Report 7818611-X (Version None)
Quarter: 2011Q4

REPORT INFORMATION
  Report Type: 
  Country: None (occurrence: None)
  Receive Date: 20111017
  Receipt Date: 20111006
  Transmission Date: 20120403
  Serious: Yes (Hospitalization)
  Sender: FDA-Public Use
  Company Number: MX-BAXTER-2011BH024223

PATIENT
  Age: 47 Year
  Sex: Male

DRUGS (2)
  1. DIANEAL [Suspect]
     Indication: PERITONEAL DIALYSIS
     Route: 033
     Dates: start: 20110701
  2. DIANEAL [Suspect]
     Route: 033
     Dates: start: 20110601

REACTIONS (1)
  - GENERALISED OEDEMA [None]
